FAERS Safety Report 11315949 (Version 2)
Quarter: 2015Q3

REPORT INFORMATION
  Report Type: Spontaneous
  Country: JP (occurrence: None)
  Receive Date: 20150724
  Receipt Date: 20150901
  Transmission Date: 20151125
  Serious: Yes (Death, Other)
  Sender: FDA-Public Use
  Company Number: 2015FE02456

PATIENT
  Age: 81 Year
  Sex: Male
  Weight: 55 kg

DRUGS (11)
  1. MEMARY (MEMANTINE HYDROCHLORIDE) [Concomitant]
     Active Substance: MEMANTINE HYDROCHLORIDE
  2. GONAX [Suspect]
     Active Substance: DEGARELIX
     Indication: PROSTATE CANCER
     Route: 058
     Dates: start: 20140108, end: 20140108
  3. TAMSULOSIN (TAMSULOSIN) [Concomitant]
     Active Substance: TAMSULOSIN
  4. BICALUTAMIDE (BICALUTAMIDE) 80 MG [Concomitant]
     Active Substance: BICALUTAMIDE
  5. CHEWABLE ANTACID (CALCIUM CARBONATE, MAGNESIUM HYDROXIDE) [Concomitant]
  6. CYMBALTA [Concomitant]
     Active Substance: DULOXETINE HYDROCHLORIDE
  7. BENET (RISEDRONATE SODIUM) [Concomitant]
  8. ACARBOSE (ACARBOSE) [Concomitant]
  9. AMARYL [Concomitant]
     Active Substance: GLIMEPIRIDE
  10. PRALIA (DENOSUMAB) [Concomitant]
  11. JANUVIA [Concomitant]
     Active Substance: SITAGLIPTIN PHOSPHATE

REACTIONS (4)
  - Bile duct cancer [None]
  - Gallbladder cancer [None]
  - Metastases to liver [None]
  - Bile duct stenosis [None]

NARRATIVE: CASE EVENT DATE: 20150223
